FAERS Safety Report 7535917-2 (Version None)
Quarter: 2011Q2

REPORT INFORMATION
  Report Type: 
  Country: None (occurrence: None)
  Receive Date: 20110609
  Receipt Date: 20110524
  Transmission Date: 20111010
  Serious: Yes (Hospitalization, Other)
  Sender: FDA-Public Use
  Company Number: FR-BAYER-2011-027941

PATIENT
  Age: 63 Year
  Sex: Male
  Weight: 92 kg

DRUGS (20)
  1. ERLOTINIB HYDROCHLORIDE [Suspect]
     Indication: HEPATIC NEOPLASM MALIGNANT
     Dosage: 150 MG, QD
     Route: 048
     Dates: start: 20100914, end: 20110505
  2. IMODIUM [Concomitant]
     Dosage: 6 MG, UNK
     Dates: start: 20110208, end: 20110411
  3. TIORFAN [Concomitant]
     Indication: PROPHYLAXIS
     Dosage: 100MG AS NEEDED
     Dates: start: 20110503
  4. DOTAREM [Concomitant]
     Indication: NUCLEAR MAGNETIC RESONANCE IMAGING
     Dosage: 20 ML, UNK
     Dates: start: 20100831, end: 20101208
  5. DEXERYL [GLYCEROL,PARAFFIN, LIQUID,WHITE SOFT PARAFFIN] [Concomitant]
     Indication: DRY SKIN
     Dosage: 3 APPL/DAY
     Dates: start: 20101005, end: 20110411
  6. FORLAX [Concomitant]
     Indication: CONSTIPATION PROPHYLAXIS
     Dosage: UNKNOWN
     Dates: start: 20110401
  7. TRANXENE [Concomitant]
     Indication: ANXIETY
     Dosage: INTERMITTENT
     Dates: start: 20100101, end: 20101001
  8. IMODIUM [Concomitant]
     Dosage: 2 MG, UNK
     Dates: start: 20101230, end: 20110207
  9. PRAVIGARD PAC (COPACKAGED) [Concomitant]
     Indication: DYSLIPIDAEMIA
     Dosage: 40 MG, UNK
     Dates: start: 20091201, end: 20101001
  10. TOPALGIC [SUPROFEN] [Concomitant]
     Indication: HEADACHE
     Dosage: 300 MG, PRN
     Dates: start: 20101026, end: 20101116
  11. VIALEBEX [Concomitant]
     Indication: ASCITES
     Dosage: 100 ML, UNK
     Dates: start: 20110406, end: 20110406
  12. PROPRANOLOL [Concomitant]
     Indication: VARICES OESOPHAGEAL
     Dosage: 160 MG, UNK
     Dates: start: 20100901
  13. CARBOSYLANE [Concomitant]
     Indication: FLATULENCE
     Dosage: UNK
     Dates: start: 20100914, end: 20101001
  14. IMODIUM [Concomitant]
     Dosage: UNK
     Dates: start: 20101001, end: 20101101
  15. XENETIX [Concomitant]
     Indication: COMPUTERISED TOMOGRAM
     Dosage: 140 ML, UNK
     Dates: start: 20101208
  16. LANTUS [Concomitant]
     Indication: TYPE 2 DIABETES MELLITUS
     Dosage: 20 U, UNK
     Dates: start: 20091201
  17. PRAVIGARD PAC (COPACKAGED) [Concomitant]
     Dosage: 1 PILL
     Dates: start: 20110329, end: 20110503
  18. IMODIUM [Concomitant]
     Indication: DIARRHOEA
     Dosage: UNK
     Dates: start: 20101001, end: 20101002
  19. SORAFENIB (RAF KINASE INHIBITOR) [Suspect]
     Indication: HEPATIC NEOPLASM MALIGNANT
     Dosage: 400 MG, BID
     Route: 048
     Dates: start: 20100914, end: 20110505
  20. METFORMIN HCL [Concomitant]
     Indication: TYPE 2 DIABETES MELLITUS
     Dosage: 3000 MG, UNK
     Dates: start: 20091201, end: 20110322

REACTIONS (1)
  - ASCITES [None]
